FAERS Safety Report 4414773-5 (Version None)
Quarter: 2004Q3

REPORT INFORMATION
  Report Type: 
  Country: None (occurrence: None)
  Receive Date: 20040804
  Receipt Date: 20030912
  Transmission Date: 20050211
  Serious: No
  Sender: FDA-Public Use
  Company Number: US-BRISTOL-MYERS SQUIBB COMPANY-12381984

PATIENT
  Age: 79 Year
  Sex: Male
  Weight: 70 kg

DRUGS (5)
  1. GLUCOVANCE [Suspect]
     Indication: DIABETES MELLITUS
     Route: 048
     Dates: start: 20030908
  2. DIGITEK [Concomitant]
  3. ECOTRIN [Concomitant]
  4. GEMFIBROZIL [Concomitant]
  5. COREG [Concomitant]

REACTIONS (4)
  - ABDOMINAL PAIN [None]
  - BLOOD GLUCOSE INCREASED [None]
  - CONSTIPATION [None]
  - DIARRHOEA [None]
